FAERS Safety Report 18903058 (Version 1)
Quarter: 2021Q1

REPORT INFORMATION
  Report Type: Spontaneous
  Country: IT (occurrence: IT)
  Receive Date: 20210217
  Receipt Date: 20210217
  Transmission Date: 20210420
  Serious: Yes (Hospitalization, Other)
  Sender: FDA-Public Use
  Company Number: IT-SUN PHARMACEUTICAL INDUSTRIES LTD-2021R1-280813

PATIENT
  Sex: Female
  Weight: 2.54 kg

DRUGS (1)
  1. FOLIC ACID. [Suspect]
     Active Substance: FOLIC ACID
     Indication: PRENATAL CARE
     Dosage: 400 MICROGRAM, DAILY
     Route: 064

REACTIONS (2)
  - Encephalitis [Recovered/Resolved]
  - Foetal exposure during pregnancy [Unknown]
